FAERS Safety Report 5452354-5 (Version None)
Quarter: 2007Q3

REPORT INFORMATION
  Report Type: 
  Country: None (occurrence: None)
  Receive Date: 20070802
  Receipt Date: 20070626
  Transmission Date: 20080115
  Serious: Yes (Other)
  Sender: FDA-Public Use
  Company Number: 476947

PATIENT
  Age: 75 Year
  Sex: Female
  Weight: 55.8 kg

DRUGS (1)
  1. BONIVA [Suspect]
     Indication: OSTEOPOROSIS
     Dosage: 1 PER 3 MONTH INTRAVENOUS
     Route: 042
     Dates: start: 20061107, end: 20061107

REACTIONS (5)
  - ARTHRALGIA [None]
  - BONE PAIN [None]
  - CELLULITIS [None]
  - MASS [None]
  - MYALGIA [None]
